FAERS Safety Report 6751131-2 (Version None)
Quarter: 2010Q2

REPORT INFORMATION
  Report Type: 
  Country: None (occurrence: None)
  Receive Date: 20100602
  Receipt Date: 20100520
  Transmission Date: 20101027
  Serious: Yes (Life-Threatening, Other)
  Sender: FDA-Public Use
  Company Number: DE-GENZYME-CLOF-1000983

PATIENT
  Sex: Female
  Weight: 59 kg

DRUGS (6)
  1. EVOLTRA [Suspect]
     Indication: ACUTE MYELOID LEUKAEMIA
     Dosage: 63 MG, QDX5
     Route: 042
     Dates: start: 20100507, end: 20100511
  2. GLUCOSE [Concomitant]
     Indication: DRUG USE FOR UNKNOWN INDICATION
     Dosage: 1000 ML, UNK
     Route: 065
     Dates: start: 20100507, end: 20100513
  3. SODIUM CHLORIDE [Concomitant]
     Indication: DRUG USE FOR UNKNOWN INDICATION
     Dosage: 1000 ML, UNK
     Route: 065
     Dates: start: 20100507, end: 20100513
  4. POTASSIUM CHLORIDE [Concomitant]
     Indication: DRUG USE FOR UNKNOWN INDICATION
     Dosage: UNK
     Route: 065
     Dates: start: 20100507, end: 20100512
  5. FORTECORTIN [Concomitant]
     Indication: DRUG USE FOR UNKNOWN INDICATION
     Dosage: UNK
     Route: 065
     Dates: start: 20100507, end: 20100513
  6. KEVATRIL [Concomitant]
     Indication: DRUG USE FOR UNKNOWN INDICATION
     Dosage: 1 MG, UNK
     Route: 065
     Dates: start: 20100507, end: 20100513

REACTIONS (6)
  - ACUTE HEPATIC FAILURE [None]
  - CAPILLARY LEAK SYNDROME [None]
  - CARDIAC FAILURE [None]
  - RENAL FAILURE ACUTE [None]
  - SEPSIS [None]
  - SOMNOLENCE [None]
